FAERS Safety Report 10496390 (Version 1)
Quarter: 2014Q4

REPORT INFORMATION
  Report Type: Report from Study
  Country: FR (occurrence: FR)
  Receive Date: 20141003
  Receipt Date: 20141003
  Transmission Date: 20150528
  Serious: Yes (Death, Other)
  Sender: FDA-Public Use
  Company Number: FR-CELGENE-056-21880-14093795

PATIENT

DRUGS (1)
  1. REVLIMID [Suspect]
     Active Substance: LENALIDOMIDE
     Indication: OVARIAN CANCER
     Dosage: 20 MILLIGRAM
     Route: 048

REACTIONS (29)
  - Venous thrombosis [Unknown]
  - Lymphopenia [Unknown]
  - Skin toxicity [Unknown]
  - Nausea [Unknown]
  - Ovarian cancer [Unknown]
  - Death [Fatal]
  - Leukopenia [Unknown]
  - Fatigue [Unknown]
  - Diarrhoea [Unknown]
  - Vomiting [Unknown]
  - Neuropathy peripheral [Unknown]
  - Decreased appetite [Unknown]
  - Nephropathy toxic [Unknown]
  - Neutropenia [Unknown]
  - Musculoskeletal disorder [Unknown]
  - Hypothyroidism [Unknown]
  - Oedema [Unknown]
  - Anaemia [Unknown]
  - Pulmonary embolism [Unknown]
  - Intestinal obstruction [Unknown]
  - Arrhythmia [Unknown]
  - Hypersensitivity [Unknown]
  - Infection [Unknown]
  - Mucosal inflammation [Unknown]
  - Thrombocytopenia [Unknown]
  - Constipation [Unknown]
  - Abdominal pain [Unknown]
  - Dyspnoea [Unknown]
  - Cough [Unknown]
